FAERS Safety Report 8443900-8 (Version None)
Quarter: 2012Q2

REPORT INFORMATION
  Report Type: 
  Country: None (occurrence: None)
  Receive Date: 20120618
  Receipt Date: 20120605
  Transmission Date: 20120825
  Serious: Yes (Hospitalization, Other)
  Sender: FDA-Public Use
  Company Number: US-BAYER-2012-056085

PATIENT
  Age: 32 Year
  Sex: Female
  Weight: 114.74 kg

DRUGS (17)
  1. KLONOPIN [Concomitant]
     Indication: ANXIETY
     Dosage: 1 MG, EVERY 8 HOURS
     Dates: start: 20070101, end: 20091209
  2. ALBUTEROL [Concomitant]
     Indication: ASTHMA
     Dosage: UNK
     Dates: start: 19900101
  3. IBUPROFEN [Concomitant]
     Dosage: 400 EVERY HOUR AS NEEDED
  4. BUPROPION HYDROCHLORIDE [Concomitant]
     Indication: DEPRESSION
  5. SEROQUEL [Concomitant]
     Indication: ANXIETY
     Dosage: 200 EVERY 12 HOURS
     Dates: start: 20050101, end: 20091209
  6. SEROQUEL [Concomitant]
     Indication: DEPRESSION
     Dosage: 100 MG, HS
  7. PREVACID [Concomitant]
     Indication: GASTROOESOPHAGEAL REFLUX DISEASE
     Dosage: 30 MG, DAILY
     Dates: start: 20050101, end: 20091009
  8. KLONOPIN [Concomitant]
     Indication: DEPRESSION
     Dosage: 1 MG, TID
  9. BUPROPION HYDROCHLORIDE [Concomitant]
     Indication: ANXIETY
     Dosage: 150 MG, DAILY
     Dates: start: 20040101, end: 20091209
  10. YASMIN [Suspect]
     Indication: CONTRACEPTION
     Dosage: UNK
     Dates: start: 20060119, end: 20080409
  11. DROSPIRENONE [Concomitant]
  12. DROSPIRENONE AND ETHINYL ESTRADIOL [Suspect]
     Indication: CONTRACEPTION
     Dosage: UNK
     Dates: start: 20080922, end: 20091214
  13. YAZ [Suspect]
  14. SEROQUEL [Concomitant]
     Dosage: 800 MG, HS
  15. FERROUS SULFATE TAB [Concomitant]
  16. MOTRIN [Concomitant]
  17. BUPROPION HCL [Concomitant]

REACTIONS (18)
  - DYSPNOEA [None]
  - MENTAL DISORDER [None]
  - PAIN [None]
  - LOSS OF CONSCIOUSNESS [None]
  - SUBCLAVIAN VEIN THROMBOSIS [None]
  - PRESYNCOPE [None]
  - DEPRESSION [None]
  - ANXIETY [None]
  - INJURY [None]
  - PULMONARY EMBOLISM [None]
  - LOCAL SWELLING [None]
  - VERTIGO [None]
  - POST-TRAUMATIC STRESS DISORDER [None]
  - DEEP VEIN THROMBOSIS [None]
  - OEDEMA PERIPHERAL [None]
  - DIZZINESS [None]
  - JUGULAR VEIN THROMBOSIS [None]
  - TRANSIENT ISCHAEMIC ATTACK [None]
